FAERS Safety Report 10018030 (Version 2)
Quarter: 2014Q1

REPORT INFORMATION
  Report Type: Spontaneous
  Country: US (occurrence: US)
  Receive Date: 20140318
  Receipt Date: 20140318
  Transmission Date: 20141002
  Serious: Yes (Death, Life-Threatening)
  Sender: FDA-Public Use
  Company Number: US-BRISTOL-MYERS SQUIBB COMPANY-18885939

PATIENT
  Age: 58 Year
  Sex: Female

DRUGS (4)
  1. ERBITUX SOLN FOR INF [Suspect]
     Indication: COLON CANCER
     Route: 042
     Dates: start: 20121023, end: 20121023
  2. FOLINIC ACID [Concomitant]
  3. FLUOROURACIL [Concomitant]
  4. IRINOTECAN [Concomitant]

REACTIONS (2)
  - Malignant neoplasm progression [Fatal]
  - Anaphylactic reaction [Recovered/Resolved]
